FAERS Safety Report 6551315-2 (Version None)
Quarter: 2010Q1

REPORT INFORMATION
  Report Type: 
  Country: None (occurrence: None)
  Receive Date: 20100120
  Receipt Date: 20100113
  Transmission Date: 20100710
  Serious: Yes (Other)
  Sender: FDA-Public Use
  Company Number: 2010SP000731

PATIENT
  Age: 23 Year
  Sex: Female
  Weight: 90 kg

DRUGS (2)
  1. IMPLANON [Suspect]
     Indication: CONTRACEPTION
     Dosage: SBDE
     Route: 059
     Dates: start: 20090330, end: 20100106
  2. IMPLANON [Suspect]

REACTIONS (7)
  - COLITIS [None]
  - HEADACHE [None]
  - MENSTRUATION IRREGULAR [None]
  - MOOD SWINGS [None]
  - NAUSEA [None]
  - SYNCOPE [None]
  - WEIGHT INCREASED [None]
